FAERS Safety Report 19971566 (Version 4)
Quarter: 2022Q1

REPORT INFORMATION
  Report Type: Spontaneous
  Country: JP (occurrence: None)
  Receive Date: 20211019
  Receipt Date: 20220201
  Transmission Date: 20220423
  Serious: Yes (Hospitalization)
  Sender: FDA-Public Use
  Company Number: 2021A773448

PATIENT
  Age: 30136 Day
  Sex: Female
  Weight: 56 kg

DRUGS (18)
  1. DAPAGLIFLOZIN [Suspect]
     Active Substance: DAPAGLIFLOZIN
     Indication: Type 1 diabetes mellitus
     Route: 048
     Dates: start: 20210804, end: 20210914
  2. CRESTOR [Concomitant]
     Active Substance: ROSUVASTATIN CALCIUM
     Indication: Hypercholesterolaemia
     Route: 048
  3. HUMALOG [Concomitant]
     Active Substance: INSULIN LISPRO
     Indication: Type 1 diabetes mellitus
     Dosage: 12 (MORNING) 14 (AFTERNOON) 12 (RIGHT BEFORE MEAL), THREE TIMES A DAY
     Route: 058
     Dates: start: 20210804
  4. HUMALOG [Concomitant]
     Active Substance: INSULIN LISPRO
     Indication: Type 1 diabetes mellitus
     Dosage: 16 (MORNING) 12 (AFTERNOON) 6 (RIGHT BEFORE EVENING MEAL)
     Route: 058
     Dates: start: 20210914
  5. HUMALOG [Concomitant]
     Active Substance: INSULIN LISPRO
     Indication: Type 1 diabetes mellitus
     Dosage: 18 (MORNING) 16 (AFTERNOON) 10 (RIGHT BEFORE MEAL) THREE TIMES A DAY
     Route: 058
     Dates: start: 20211030
  6. LANTUS [Concomitant]
     Active Substance: INSULIN GLARGINE
     Indication: Type 1 diabetes mellitus
     Route: 058
     Dates: start: 20100128
  7. LANTUS [Concomitant]
     Active Substance: INSULIN GLARGINE
     Indication: Type 1 diabetes mellitus
     Route: 058
     Dates: start: 20210804
  8. LANTUS [Concomitant]
     Active Substance: INSULIN GLARGINE
     Indication: Type 1 diabetes mellitus
     Route: 058
     Dates: start: 20210914
  9. LANTUS [Concomitant]
     Active Substance: INSULIN GLARGINE
     Indication: Type 1 diabetes mellitus
     Route: 058
     Dates: start: 20211030
  10. UNISIA [Concomitant]
     Active Substance: AMLODIPINE BESYLATE\CANDESARTAN CILEXETIL
     Indication: Hypertension
     Dosage: CANDESARTAN 8 MG + AMLODIPINE 5 MG ONCE DAILY
     Route: 048
     Dates: start: 20201221
  11. ZETIA [Concomitant]
     Active Substance: EZETIMIBE
     Indication: Hypercholesterolaemia
     Route: 048
  12. ASPIRIN [Concomitant]
     Active Substance: ASPIRIN
     Indication: Angina pectoris
     Route: 048
  13. LEVOTHYROXINE [Concomitant]
     Active Substance: LEVOTHYROXINE
     Indication: Hypothyroidism
     Route: 048
  14. EPALRESTAT [Concomitant]
     Active Substance: EPALRESTAT
     Indication: Neuralgia
     Route: 048
     Dates: start: 20210330
  15. CELECOXIB [Concomitant]
     Active Substance: CELECOXIB
     Dosage: DOSE UNKNOWN
     Route: 065
  16. REBAMIPIDE [Concomitant]
     Active Substance: REBAMIPIDE
     Dosage: DOSE UNKNOWN
     Route: 065
  17. LAFUTIDINE [Concomitant]
     Active Substance: LAFUTIDINE
     Dosage: DOSE UNKNOWN
     Route: 065
  18. SHAKUYAKUKANZOTO [Concomitant]
     Active Substance: HERBALS
     Dosage: DOSE UNKNOWN
     Route: 065

REACTIONS (5)
  - Hepatic function abnormal [Recovering/Resolving]
  - Pancreatic cyst [Unknown]
  - Gallbladder enlargement [Unknown]
  - Pancreatic duct dilatation [Unknown]
  - Pancreatic mass [Unknown]

NARRATIVE: CASE EVENT DATE: 20210911
